FAERS Safety Report 7206497-6 (Version None)
Quarter: 2011Q1

REPORT INFORMATION
  Report Type: 
  Country: None (occurrence: None)
  Receive Date: 20110103
  Receipt Date: 20101206
  Transmission Date: 20110831
  Serious: Yes (Other)
  Sender: FDA-Public Use
  Company Number: DE-PFIZER INC-2010165450

PATIENT
  Sex: Male

DRUGS (2)
  1. MARCUMAR [Suspect]
     Dosage: UNK
     Dates: start: 20101101
  2. SORTIS [Suspect]

REACTIONS (1)
  - INTERNATIONAL NORMALISED RATIO INCREASED [None]
